FAERS Safety Report 12240152 (Version 2)
Quarter: 2016Q2

REPORT INFORMATION
  Report Type: Spontaneous
  Country: IE (occurrence: IE)
  Receive Date: 20160405
  Receipt Date: 20160429
  Transmission Date: 20160815
  Serious: Yes (Death, Hospitalization, Other)
  Sender: FDA-Public Use
  Company Number: IE-GILEAD-2016-0206254

PATIENT
  Age: 50 Year
  Sex: Male
  Weight: 70.4 kg

DRUGS (36)
  1. COPEGUS [Suspect]
     Active Substance: RIBAVIRIN
     Indication: HEPATITIS C
     Dosage: 400 MG, BID
     Route: 048
     Dates: start: 20150811, end: 20151201
  2. NORVIR [Suspect]
     Active Substance: RITONAVIR
     Indication: HIV INFECTION
     Dosage: 100 MG, BID
     Route: 048
     Dates: start: 20151103, end: 20151224
  3. NOVORAPID [Concomitant]
     Active Substance: INSULIN ASPART
     Dosage: AS PER SCALE
  4. ISENTRESS [Concomitant]
     Active Substance: RALTEGRAVIR POTASSIUM
     Indication: HIV INFECTION
  5. GALFER [Concomitant]
     Active Substance: IRON
     Indication: IRON DEFICIENCY
  6. MOVICOL PLAIN [Concomitant]
     Dosage: 1 SACHET DAILY
  7. BETNOVATE [Concomitant]
     Active Substance: BETAMETHASONE
     Indication: RASH
     Dosage: APPLIED SPARINGLY
     Route: 061
  8. SOLPADEINE                         /00116401/ [Concomitant]
     Indication: PAIN
     Dosage: 1G/16MG
     Dates: start: 20151226, end: 20160105
  9. SENOKOT [Concomitant]
     Active Substance: SENNOSIDES
     Indication: GASTROINTESTINAL MOTILITY DISORDER
     Dosage: NOCTE
     Dates: start: 20151226, end: 20160108
  10. GLYCOPYRRONIUM BROMIDE [Concomitant]
     Active Substance: GLYCOPYRRONIUM
     Indication: SECRETION DISCHARGE
     Dosage: 200-600
     Dates: start: 20160105, end: 20160108
  11. PREZISTA [Suspect]
     Active Substance: DARUNAVIR ETHANOLATE
     Indication: HIV INFECTION
     Route: 048
     Dates: start: 20151103, end: 20151201
  12. TRUVADA [Concomitant]
     Active Substance: EMTRICITABINE\TENOFOVIR DISOPROXIL FUMARATE
     Dosage: 245MG/200MG
  13. MOVICOL PLAIN [Concomitant]
     Indication: GASTROINTESTINAL MOTILITY DISORDER
     Dosage: 1 SACHET DAILY
  14. HARVONI [Suspect]
     Active Substance: LEDIPASVIR\SOFOSBUVIR
     Indication: HEPATITIS C
     Dosage: 400MG/9
     Route: 048
     Dates: start: 20150811, end: 20151224
  15. ECALTA [Concomitant]
     Active Substance: ANIDULAFUNGIN
     Indication: INFECTION
     Dates: start: 20160105, end: 20160108
  16. TRUVADA [Concomitant]
     Active Substance: EMTRICITABINE\TENOFOVIR DISOPROXIL FUMARATE
     Indication: HIV INFECTION
     Dosage: 245MG/200MG
  17. PABRINEX                           /00041801/ [Concomitant]
     Dates: start: 20160105, end: 20160108
  18. CLONIDINE. [Concomitant]
     Active Substance: CLONIDINE
     Dates: start: 20160105, end: 20160108
  19. PIRITON [Concomitant]
     Active Substance: CHLORPHENIRAMINE MALEATE
     Indication: PRURITUS
  20. FENTANYL. [Concomitant]
     Active Substance: FENTANYL
     Indication: PAIN
     Dates: start: 20160105, end: 20160108
  21. ISENTRESS [Concomitant]
     Active Substance: RALTEGRAVIR POTASSIUM
  22. PIRITON [Concomitant]
     Active Substance: CHLORPHENIRAMINE MALEATE
  23. VANCOMYCIN HYDROCHLORIDE. [Concomitant]
     Active Substance: VANCOMYCIN HYDROCHLORIDE
     Indication: INFECTION
     Dates: start: 20160101, end: 20160108
  24. MEROPENEM HOSPIRA [Concomitant]
     Active Substance: MEROPENEM
     Indication: INFECTION
     Dates: start: 20160101, end: 20160108
  25. NOVORAPID [Concomitant]
     Active Substance: INSULIN ASPART
     Indication: DIABETES MELLITUS
     Dosage: AS PER SCALE
  26. TRUVADA [Concomitant]
     Active Substance: EMTRICITABINE\TENOFOVIR DISOPROXIL FUMARATE
     Dosage: 245MG/200MG
  27. LANTUS [Concomitant]
     Active Substance: INSULIN GLARGINE
     Indication: DIABETES MELLITUS
  28. FOLINIC ACID [Concomitant]
     Active Substance: LEUCOVORIN
     Dates: start: 20160105, end: 20160108
  29. ISENTRESS [Concomitant]
     Active Substance: RALTEGRAVIR POTASSIUM
  30. LANSOPRAZOLE. [Concomitant]
     Active Substance: LANSOPRAZOLE
     Indication: PROPHYLAXIS AGAINST GASTROINTESTINAL ULCER
     Dates: start: 20151224, end: 20151226
  31. ZIRPINE [Concomitant]
     Indication: PRURITUS
     Dates: start: 20151226, end: 20160108
  32. ARCOXIA [Suspect]
     Active Substance: ETORICOXIB
     Indication: ARTHRALGIA
     Route: 048
     Dates: start: 20151117, end: 20151201
  33. ZANTAC [Suspect]
     Active Substance: RANITIDINE HYDROCHLORIDE
     Indication: PROPHYLAXIS AGAINST GASTROINTESTINAL ULCER
     Dosage: 50 MG, TID
     Route: 042
     Dates: start: 20151226
  34. NOVORAPID [Concomitant]
     Active Substance: INSULIN ASPART
     Dosage: AS PER SCALE
  35. LAXOSE [Concomitant]
     Indication: GASTROINTESTINAL MOTILITY DISORDER
     Dates: start: 20151226, end: 20160108
  36. SOLU-MEDRONE [Concomitant]
     Active Substance: METHYLPREDNISOLONE SODIUM SUCCINATE
     Dates: start: 20160105, end: 20160108

REACTIONS (4)
  - Hypersensitivity [Fatal]
  - Immune thrombocytopenic purpura [Fatal]
  - Platelet count decreased [Not Recovered/Not Resolved]
  - Gastrointestinal haemorrhage [Fatal]

NARRATIVE: CASE EVENT DATE: 20151201
